FAERS Safety Report 20920016 (Version 1)
Quarter: 2022Q2

REPORT INFORMATION
  Report Type: Spontaneous
  Country: US (occurrence: US)
  Receive Date: 20220606
  Receipt Date: 20220606
  Transmission Date: 20220721
  Serious: No
  Sender: FDA-Public Use
  Company Number: US-009507513-2205USA008337

PATIENT
  Sex: Female

DRUGS (3)
  1. DIFICID [Suspect]
     Active Substance: FIDAXOMICIN
     Indication: Clostridium difficile infection
     Dosage: 200 MILLIGRAM ONCE A DAY
     Route: 048
     Dates: start: 202205, end: 20220524
  2. LASIX [Concomitant]
     Active Substance: FUROSEMIDE
     Dosage: 20 MG ONCE A DAY
  3. TIMOLOL [Concomitant]
     Active Substance: TIMOLOL
     Dosage: 0.25 % 1 DROP TWICE A DAY RIGHT EYE

REACTIONS (4)
  - Product prescribing issue [Unknown]
  - Inability to afford medication [Unknown]
  - Product use issue [Unknown]
  - No adverse event [Unknown]
